FAERS Safety Report 22646607 (Version 6)
Quarter: 2025Q1

REPORT INFORMATION
  Report Type: Spontaneous
  Country: US (occurrence: US)
  Receive Date: 20230627
  Receipt Date: 20250131
  Transmission Date: 20250409
  Serious: No
  Sender: VERTEX
  Company Number: US-VERTEX PHARMACEUTICALS-2023-009340

PATIENT
  Sex: Male

DRUGS (3)
  1. TRIKAFTA [Suspect]
     Active Substance: ELEXACAFTOR\IVACAFTOR\TEZACAFTOR
     Indication: Cystic fibrosis
     Route: 048
  2. TRIKAFTA [Suspect]
     Active Substance: ELEXACAFTOR\IVACAFTOR\TEZACAFTOR
     Dosage: SWAPPING NIGHT AND DAY DOSE, BLUE PILL IN AM, YELLOW IN PM
     Route: 048
  3. TRIKAFTA [Suspect]
     Active Substance: ELEXACAFTOR\IVACAFTOR\TEZACAFTOR
     Dosage: SWITCHING TO THE ONCE DAILY IN THE MORNING
     Route: 048

REACTIONS (8)
  - Anxiety [Recovered/Resolved]
  - Anger [Recovering/Resolving]
  - Poor quality sleep [Recovering/Resolving]
  - Nervousness [Recovering/Resolving]
  - Behaviour disorder [Recovering/Resolving]
  - Psychomotor hyperactivity [Recovering/Resolving]
  - Patient uncooperative [Recovering/Resolving]
  - Mood swings [Recovering/Resolving]
